FAERS Safety Report 24699250 (Version 1)
Quarter: 2024Q4

REPORT INFORMATION
  Report Type: Spontaneous
  Country: CN (occurrence: CN)
  Receive Date: 20241205
  Receipt Date: 20241205
  Transmission Date: 20250114
  Serious: Yes (Hospitalization)
  Sender: BEIGENE
  Company Number: CN-BEIGENE-BGN-2024-019163

PATIENT

DRUGS (6)
  1. TISLELIZUMAB [Suspect]
     Active Substance: TISLELIZUMAB
     Indication: Nonkeratinising carcinoma of nasopharynx
     Dosage: 200 MILLIGRAM
     Route: 041
     Dates: start: 20241105
  2. TISLELIZUMAB [Suspect]
     Active Substance: TISLELIZUMAB
     Indication: Undifferentiated nasopharyngeal carcinoma
  3. CISPLATIN [Suspect]
     Active Substance: CISPLATIN
     Indication: Nonkeratinising carcinoma of nasopharynx
     Dosage: 120 MILLIGRAM
     Route: 041
     Dates: start: 20241105
  4. CISPLATIN [Suspect]
     Active Substance: CISPLATIN
     Indication: Undifferentiated nasopharyngeal carcinoma
  5. GEMCITABINE HYDROCHLORIDE [Suspect]
     Active Substance: GEMCITABINE HYDROCHLORIDE
     Indication: Nonkeratinising carcinoma of nasopharynx
     Dosage: 1.8 GRAM
     Route: 041
     Dates: start: 20241105
  6. GEMCITABINE HYDROCHLORIDE [Suspect]
     Active Substance: GEMCITABINE HYDROCHLORIDE
     Indication: Undifferentiated nasopharyngeal carcinoma

REACTIONS (2)
  - Leukopenia [Unknown]
  - Lymphocyte count decreased [Unknown]

NARRATIVE: CASE EVENT DATE: 20241112
